FAERS Safety Report 15237396 (Version 3)
Quarter: 2019Q2

REPORT INFORMATION
  Report Type: Spontaneous
  Country: PL (occurrence: PL)
  Receive Date: 20180803
  Receipt Date: 20190512
  Transmission Date: 20190711
  Serious: Yes (Death, Hospitalization, Other)
  Sender: FDA-Public Use
  Company Number: PHHY2018PL063144

PATIENT
  Age: 70 Year
  Sex: Male

DRUGS (5)
  1. TICAGRELOR. [Suspect]
     Active Substance: TICAGRELOR
     Indication: ACUTE CORONARY SYNDROME
     Dosage: 90 MG, BID
     Route: 065
  2. ACETYLSALICYLIC ACID [Suspect]
     Active Substance: ASPIRIN
     Indication: ANTIPLATELET THERAPY
     Dosage: 75 MG
     Route: 065
  3. EPTIFIBATIDE. [Concomitant]
     Active Substance: EPTIFIBATIDE
     Indication: PRODUCT USED FOR UNKNOWN INDICATION
     Dosage: UNK
     Route: 041
  4. TICAGRELOR. [Suspect]
     Active Substance: TICAGRELOR
     Indication: ANTIPLATELET THERAPY
  5. ENOXAPARIN SODIUM. [Suspect]
     Active Substance: ENOXAPARIN SODIUM
     Indication: THROMBOSIS
     Dosage: 40 MG, QD
     Route: 058

REACTIONS (9)
  - Skin necrosis [Unknown]
  - Drug ineffective [Unknown]
  - Thrombosis [Unknown]
  - Pneumonia [Unknown]
  - Condition aggravated [Unknown]
  - Respiratory failure [Fatal]
  - Cardiac arrest [Fatal]
  - Ventricular hyperkinesia [Unknown]
  - Haematoma [Unknown]
